FAERS Safety Report 6204462-9 (Version None)
Quarter: 2009Q2

REPORT INFORMATION
  Report Type: 
  Country: None (occurrence: None)
  Receive Date: 20090521
  Receipt Date: 20090513
  Transmission Date: 20091009
  Serious: Yes (Other)
  Sender: FDA-Public Use
  Company Number: 2009SP010366

PATIENT
  Age: 54 Year
  Sex: Male

DRUGS (1)
  1. NASONEX [Suspect]
     Dosage: NAS
     Route: 045

REACTIONS (1)
  - ASTHMA [None]
